FAERS Safety Report 13912937 (Version 1)
Quarter: 2017Q3

REPORT INFORMATION
  Report Type: Spontaneous
  Country: US (occurrence: US)
  Receive Date: 20170828
  Receipt Date: 20170828
  Transmission Date: 20171127
  Serious: No
  Sender: FDA-Public Use
  Company Number: US-SUNOVION-2017SUN003631

PATIENT
  Sex: Male
  Weight: 84.81 kg

DRUGS (6)
  1. VICODIN [Concomitant]
     Active Substance: ACETAMINOPHEN\HYDROCODONE BITARTRATE
     Indication: RHEUMATOID ARTHRITIS
  2. VICODIN [Concomitant]
     Active Substance: ACETAMINOPHEN\HYDROCODONE BITARTRATE
     Indication: PAIN
  3. METHOTREXATE. [Concomitant]
     Active Substance: METHOTREXATE
     Indication: RHEUMATOID ARTHRITIS
     Dosage: UNK
  4. KLONOPIN [Concomitant]
     Active Substance: CLONAZEPAM
     Indication: ANXIETY
  5. VICODIN [Concomitant]
     Active Substance: ACETAMINOPHEN\HYDROCODONE BITARTRATE
     Indication: SWELLING
  6. LATUDA [Suspect]
     Active Substance: LURASIDONE HYDROCHLORIDE
     Indication: BIPOLAR DISORDER
     Dosage: 20 MG, UNK
     Route: 048
     Dates: start: 201704, end: 20170812

REACTIONS (4)
  - Feeding disorder [Not Recovered/Not Resolved]
  - Tooth extraction [Recovering/Resolving]
  - Weight decreased [Not Recovered/Not Resolved]
  - Drug dose omission [Unknown]
